APPROVED DRUG PRODUCT: NIFEDIPINE
Active Ingredient: NIFEDIPINE
Strength: 30MG
Dosage Form/Route: TABLET, EXTENDED RELEASE;ORAL
Application: A201071 | Product #001
Applicant: RISING PHARMA HOLDING INC
Approved: Dec 3, 2010 | RLD: No | RS: No | Type: DISCN